FAERS Safety Report 20878247 (Version 4)
Quarter: 2022Q3

REPORT INFORMATION
  Report Type: Spontaneous
  Country: US (occurrence: US)
  Receive Date: 20220526
  Receipt Date: 20220818
  Transmission Date: 20221026
  Serious: No
  Sender: FDA-Public Use
  Company Number: US-DSJP-DSU-2022-117828AA

PATIENT
  Sex: Male

DRUGS (1)
  1. TURALIO [Suspect]
     Active Substance: PEXIDARTINIB HYDROCHLORIDE
     Indication: Giant cell tumour of tendon sheath
     Dosage: 200 MG, BID
     Route: 048
     Dates: start: 20220309

REACTIONS (4)
  - Faeces soft [Recovered/Resolved]
  - Abdominal discomfort [Recovered/Resolved]
  - Hair colour changes [Recovered/Resolved]
  - Product dose omission issue [Recovered/Resolved]

NARRATIVE: CASE EVENT DATE: 20220101
